FAERS Safety Report 17103559 (Version 1)
Quarter: 2019Q4

REPORT INFORMATION
  Report Type: Spontaneous
  Country: US (occurrence: US)
  Receive Date: 20191202
  Receipt Date: 20191202
  Transmission Date: 20200122
  Serious: Yes (Other)
  Sender: FDA-Public Use
  Company Number: None

PATIENT
  Age: 73 Year
  Sex: Female
  Weight: 58.95 kg

DRUGS (4)
  1. EMEND 150 MG [Concomitant]
     Dates: start: 20191119, end: 20191119
  2. GRANISETRON 1 MG [Concomitant]
     Dates: start: 20191119, end: 20191119
  3. OXALIPLATIN. [Suspect]
     Active Substance: OXALIPLATIN
     Indication: COLORECTAL CANCER
     Dosage: ?          OTHER FREQUENCY:Q14D;?
     Route: 042
  4. DEXAMETHASONE 10 MG [Concomitant]
     Dates: start: 20191119, end: 20191119

REACTIONS (4)
  - Feeling abnormal [None]
  - Infusion related reaction [None]
  - Dizziness [None]
  - Unresponsive to stimuli [None]

NARRATIVE: CASE EVENT DATE: 20191119
